FAERS Safety Report 20143034 (Version 2)
Quarter: 2021Q4

REPORT INFORMATION
  Report Type: Spontaneous
  Country: US (occurrence: US)
  Receive Date: 20211202
  Receipt Date: 20211221
  Transmission Date: 20220304
  Serious: No
  Sender: FDA-Public Use
  Company Number: US-JNJFOC-20211164304

PATIENT
  Age: 62 Year
  Sex: Male

DRUGS (1)
  1. DARZALEX [Suspect]
     Active Substance: DARATUMUMAB
     Indication: Product used for unknown indication
     Route: 065

REACTIONS (8)
  - Sinus congestion [Unknown]
  - Lacrimation increased [Unknown]
  - Cough [Unknown]
  - Tachycardia [Unknown]
  - Pharyngeal disorder [Unknown]
  - Vomiting [Unknown]
  - Dyspnoea [Unknown]
  - Infusion related reaction [Unknown]
